FAERS Safety Report 9677287 (Version 2)
Quarter: 2013Q4

REPORT INFORMATION
  Report Type: Spontaneous
  Country: US (occurrence: US)
  Receive Date: 20131108
  Receipt Date: 20131202
  Transmission Date: 20140711
  Serious: Yes (Other)
  Sender: FDA-Public Use
  Company Number: US-PFIZER INC-2013314264

PATIENT
  Age: 66 Year
  Sex: Female
  Weight: 78 kg

DRUGS (8)
  1. LEVOTHYROXINE SODIUM [Suspect]
     Indication: PRIMARY HYPOTHYROIDISM
     Dosage: 112 UG, UNK
  2. JAKAFI [Suspect]
     Indication: MYELOFIBROSIS
     Dosage: 15 MG, 2X/DAY
     Route: 048
     Dates: start: 20121030
  3. JAKAFI [Suspect]
     Dosage: 20 MG, UNK
     Dates: start: 20130823
  4. LOPRESSOR [Concomitant]
     Dosage: UNK
  5. ALBUTEROL [Concomitant]
     Dosage: UNK
  6. EFFEXOR [Concomitant]
     Dosage: 75 MG, 1X/DAY
  7. METOPROLOL [Concomitant]
     Indication: BLOOD PRESSURE
     Dosage: 12.5, TWICE DAILY
  8. SYNTHROID [Concomitant]
     Dosage: 150 MG, UNK

REACTIONS (2)
  - Blood thyroid stimulating hormone increased [Recovered/Resolved]
  - Thyroxine increased [Recovered/Resolved]
